FAERS Safety Report 6111944-7 (Version None)
Quarter: 2009Q1

REPORT INFORMATION
  Report Type: 
  Country: None (occurrence: None)
  Receive Date: 20090311
  Receipt Date: 20090309
  Transmission Date: 20090719
  Serious: No
  Sender: FDA-Public Use
  Company Number: US-B.I. PHARMACEUTICALS,INC./RIDGEFIELD-2009-BP-02847BP

PATIENT
  Age: 45 Year
  Sex: Male

DRUGS (2)
  1. MICARDIS HCT [Suspect]
     Indication: HYPERTENSION
     Route: 048
     Dates: start: 20070101
  2. IBUPROFEN [Concomitant]
     Indication: PAIN

REACTIONS (2)
  - BLOOD PRESSURE DECREASED [None]
  - DIZZINESS POSTURAL [None]
